FAERS Safety Report 15722104 (Version 1)
Quarter: 2018Q4

REPORT INFORMATION
  Report Type: Spontaneous
  Country: US (occurrence: US)
  Receive Date: 20181207
  Receipt Date: 20181207
  Transmission Date: 20190205
  Serious: No
  Sender: FDA-Public Use
  Company Number: None

PATIENT
  Age: 62 Year
  Sex: Female

DRUGS (1)
  1. MAVYRET [Suspect]
     Active Substance: GLECAPREVIR\PIBRENTASVIR
     Dates: start: 20181031, end: 20181102

REACTIONS (3)
  - Speech disorder [None]
  - Gait disturbance [None]
  - Cognitive disorder [None]

NARRATIVE: CASE EVENT DATE: 20181031
